FAERS Safety Report 15058332 (Version 4)
Quarter: 2018Q3

REPORT INFORMATION
  Report Type: Spontaneous
  Country: US (occurrence: US)
  Receive Date: 20180625
  Receipt Date: 20180903
  Transmission Date: 20181010
  Serious: No
  Sender: FDA-Public Use
  Company Number: US-PFIZER INC-2018254811

PATIENT
  Age: 54 Year
  Sex: Female
  Weight: 91 kg

DRUGS (2)
  1. EUCRISA [Suspect]
     Active Substance: CRISABOROLE
     Indication: SEBORRHOEIC DERMATITIS
     Dosage: UNK, 2X/DAY (APPLY TO FACE TWICE A DAY ON AFFECTED AREAS)
     Dates: start: 20180620, end: 20180620
  2. EUCRISA [Suspect]
     Active Substance: CRISABOROLE
     Indication: ECZEMA

REACTIONS (5)
  - Application site paraesthesia [Recovering/Resolving]
  - Application site pain [Recovering/Resolving]
  - Application site rash [Recovering/Resolving]
  - Application site pruritus [Recovering/Resolving]
  - Drug hypersensitivity [Unknown]

NARRATIVE: CASE EVENT DATE: 201806
